FAERS Safety Report 4594598-0 (Version None)
Quarter: 2005Q1

REPORT INFORMATION
  Report Type: 
  Country: None (occurrence: None)
  Receive Date: 20050301
  Receipt Date: 20040902
  Transmission Date: 20050727
  Serious: No
  Sender: FDA-Public Use
  Company Number: US-BRISTOL-MYERS SQUIBB COMPANY-12691234

PATIENT
  Age: 34 Year
  Sex: Male
  Weight: 53 kg

DRUGS (19)
  1. ERBITUX [Suspect]
     Indication: COLORECTAL CANCER METASTATIC
     Route: 042
     Dates: start: 20040902, end: 20040902
  2. ANZEMET [Concomitant]
     Indication: PREMEDICATION
     Route: 042
     Dates: start: 20040902, end: 20040902
  3. BENADRYL [Concomitant]
     Indication: PREMEDICATION
     Route: 042
     Dates: start: 20040902, end: 20040902
  4. DECADRON [Concomitant]
     Indication: PREMEDICATION
     Route: 042
     Dates: start: 20040902, end: 20040902
  5. SOLU-CORTEF [Concomitant]
     Indication: PREMEDICATION
     Route: 042
     Dates: start: 20040902, end: 20040902
  6. ZANTAC [Concomitant]
     Indication: PREMEDICATION
     Route: 042
     Dates: start: 20040902, end: 20040902
  7. AMBIEN [Concomitant]
     Indication: INSOMNIA
     Dosage: 1 TABLET QHS PRN INSOMNIA
     Route: 048
     Dates: start: 20040315
  8. ATIVAN [Concomitant]
     Dates: start: 20040518
  9. CAMPTOSAR [Concomitant]
     Dates: start: 20040630
  10. COMPAZINE [Concomitant]
     Indication: NAUSEA
     Dosage: 1 OR 2 TABLETS EVERY 4-6 HOURS FOR NAUSEA.
     Route: 048
     Dates: start: 20040119
  11. COUMADIN [Concomitant]
     Route: 048
     Dates: start: 20040119
  12. DILAUDID [Concomitant]
     Indication: PAIN
     Dosage: 1-2 TABLETS EVERY 3 HOURS AS NEEDED FOR PAIN.
     Route: 048
     Dates: start: 20040630
  13. DURAGESIC-100 [Concomitant]
     Route: 062
     Dates: start: 20040804
  14. FERROUS SULFATE TAB [Concomitant]
     Dates: start: 20040713
  15. FLUOROURACIL [Concomitant]
     Dates: start: 20040119
  16. LEUCOVORIN [Concomitant]
     Dates: start: 20040119
  17. LEXAPRO [Concomitant]
     Route: 048
     Dates: start: 20040518
  18. MEGACE [Concomitant]
     Dates: start: 20040713
  19. EPOGEN [Concomitant]
     Route: 058
     Dates: start: 20040804

REACTIONS (3)
  - ACNE [None]
  - DRY SKIN [None]
  - HYPOAESTHESIA [None]
